FAERS Safety Report 16882383 (Version 1)
Quarter: 2019Q4

REPORT INFORMATION
  Report Type: Spontaneous
  Country: US (occurrence: US)
  Receive Date: 20191003
  Receipt Date: 20191003
  Transmission Date: 20200122
  Serious: Yes (Other)
  Sender: FDA-Public Use
  Company Number: US-ALLERGAN-1939879US

PATIENT
  Sex: Female

DRUGS (2)
  1. SUPPLEMENTS [Concomitant]
     Active Substance: UNSPECIFIED INGREDIENT
  2. KYBELLA [Suspect]
     Active Substance: DEOXYCHOLIC ACID
     Indication: PRODUCT USED FOR UNKNOWN INDICATION
     Dosage: UNK UNK, SINGLE
     Dates: start: 201808, end: 201808

REACTIONS (3)
  - Lymphadenopathy [Not Recovered/Not Resolved]
  - Thyroid neoplasm [Not Recovered/Not Resolved]
  - B-cell lymphoma [Not Recovered/Not Resolved]
